FAERS Safety Report 4752271-X (Version None)
Quarter: 2005Q3

REPORT INFORMATION
  Report Type: 
  Country: None (occurrence: None)
  Receive Date: 20050824
  Receipt Date: 20050824
  Transmission Date: 20060218
  Serious: No
  Sender: FDA-Public Use
  Company Number: None

PATIENT
  Age: 74 Year
  Sex: Male
  Weight: 75.2971 kg

DRUGS (7)
  1. DOFETILIDE    500MG [Suspect]
     Indication: ATRIAL FIBRILLATION
     Dosage: 500MG   BID   PO
     Route: 048
     Dates: start: 20050712, end: 20050713
  2. ALBUTEROL [Concomitant]
  3. DILTIAZEM [Concomitant]
  4. FLUNISOLIDE [Concomitant]
  5. IPRATROPIUM BROMIDE [Concomitant]
  6. METOPROLOL TARTRATE [Concomitant]
  7. SIMETHICONE [Concomitant]

REACTIONS (1)
  - ELECTROCARDIOGRAM QT CORRECTED INTERVAL PROLONGED [None]
